FAERS Safety Report 6817665-7 (Version None)
Quarter: 2010Q3

REPORT INFORMATION
  Report Type: 
  Country: None (occurrence: None)
  Receive Date: 20100706
  Receipt Date: 20100630
  Transmission Date: 20110219
  Serious: Yes (Death, Other)
  Sender: FDA-Public Use
  Company Number: US-ELI_LILLY_AND_COMPANY-US201006001803

PATIENT
  Sex: Male
  Weight: 73.469 kg

DRUGS (5)
  1. GEMZAR [Suspect]
     Indication: PANCREATIC CARCINOMA
     Dosage: 1160 MG, UNK
     Dates: start: 20100512
  2. TAXOTERE [Concomitant]
  3. CAPECITABINE [Concomitant]
  4. ZOFRAN [Concomitant]
  5. DEXAMETHASONE [Concomitant]

REACTIONS (2)
  - MALIGNANT NEOPLASM PROGRESSION [None]
  - PANCREATIC CARCINOMA [None]
